APPROVED DRUG PRODUCT: WAKIX
Active Ingredient: PITOLISANT HYDROCHLORIDE
Strength: EQ 17.8MG BASE
Dosage Form/Route: TABLET;ORAL
Application: N211150 | Product #002
Applicant: HARMONY BIOSCIENCES MANAGEMENT INC
Approved: Aug 14, 2019 | RLD: Yes | RS: Yes | Type: RX

PATENTS:
Patent 8486947 | Expires: Sep 26, 2029
Patent 8354430 | Expires: Feb 6, 2026
Patent 8354430 | Expires: Feb 6, 2026
Patent 8486947 | Expires: Sep 26, 2029
Patent 8207197 | Expires: Mar 7, 2030

EXCLUSIVITY:
Code: NPP | Date: Jun 21, 2027
Code: ODE-255 | Date: Aug 14, 2026
Code: ODE-331 | Date: Oct 13, 2027
Code: ODE-489 | Date: Jun 21, 2031